FAERS Safety Report 5066931-7 (Version None)
Quarter: 2006Q3

REPORT INFORMATION
  Report Type: 
  Country: None (occurrence: None)
  Receive Date: 20060726
  Receipt Date: 20060712
  Transmission Date: 20061208
  Serious: Yes (Hospitalization)
  Sender: FDA-Public Use
  Company Number: 2006PV017350

PATIENT
  Age: 49 Year
  Sex: Female

DRUGS (4)
  1. BYETTA [Suspect]
     Indication: DIABETES MELLITUS NON-INSULIN-DEPENDENT
     Dosage: 5 MCG; BID; SC
     Route: 058
     Dates: start: 20060113, end: 20060711
  2. ACTOS [Concomitant]
  3. PREDNISONE [Concomitant]
  4. ZOLOFT [Concomitant]

REACTIONS (3)
  - CELLULITIS [None]
  - LACERATION [None]
  - LEUKOPENIA [None]
